FAERS Safety Report 9845725 (Version 2)
Quarter: 2015Q1

REPORT INFORMATION
  Report Type: Spontaneous
  Country: US (occurrence: US)
  Receive Date: 20140127
  Receipt Date: 20150205
  Transmission Date: 20150721
  Serious: No
  Sender: FDA-Public Use
  Company Number: US-PFIZER INC-2014020928

PATIENT
  Sex: Female

DRUGS (3)
  1. TETRACYCLINE HCL [Suspect]
     Active Substance: TETRACYCLINE HYDROCHLORIDE
     Dosage: UNK
  2. MORPHINE SULFATE. [Suspect]
     Active Substance: MORPHINE SULFATE
     Dosage: UNK
     Route: 048
  3. TETRACYCLINE METAPHOSPHATE [Suspect]
     Active Substance: TETRACYCLINE PHOSPHATE COMPLEX
     Dosage: UNK

REACTIONS (2)
  - Drug hypersensitivity [Unknown]
  - Chest pain [Unknown]
